FAERS Safety Report 9742692 (Version 1)
Quarter: 2013Q4

REPORT INFORMATION
  Report Type: Spontaneous
  Country: US (occurrence: US)
  Receive Date: 20131210
  Receipt Date: 20131210
  Transmission Date: 20140711
  Serious: No
  Sender: FDA-Public Use
  Company Number: US-GILEAD-2009-0025716

PATIENT
  Sex: Female
  Weight: 72.57 kg

DRUGS (15)
  1. LETAIRIS [Suspect]
     Indication: PULMONARY ARTERIAL HYPERTENSION
     Route: 048
     Dates: start: 20091007
  2. ALPHAGAN [Concomitant]
  3. LOTEMAX [Concomitant]
  4. FOSAMAX [Concomitant]
  5. ZOCOR [Concomitant]
  6. SOMA [Concomitant]
  7. AMARYL [Concomitant]
  8. VICODIN [Concomitant]
  9. IMURAN [Concomitant]
  10. DIOVAN [Concomitant]
  11. ESTRADIOL [Concomitant]
  12. LISINOPRIL [Concomitant]
  13. METFORMIN [Concomitant]
  14. PREDNISONE [Concomitant]
  15. BYETTA [Concomitant]

REACTIONS (2)
  - Ear discomfort [Unknown]
  - Constipation [Unknown]
